FAERS Safety Report 5490946-8 (Version None)
Quarter: 2007Q4

REPORT INFORMATION
  Report Type: 
  Country: None (occurrence: None)
  Receive Date: 20071019
  Receipt Date: 20071008
  Transmission Date: 20080405
  Serious: Yes (Other)
  Sender: FDA-Public Use
  Company Number: US-PFIZER INC-2007086086

PATIENT
  Sex: Female
  Weight: 87.1 kg

DRUGS (5)
  1. CHANTIX [Suspect]
     Indication: EX-SMOKER
     Dates: start: 20060101, end: 20071005
  2. DICLOFENAC [Concomitant]
  3. PRAVASTATIN [Concomitant]
  4. ADVAIR DISKUS 100/50 [Concomitant]
  5. LISINOPRIL [Concomitant]

REACTIONS (7)
  - ABNORMAL DREAMS [None]
  - BLOOD PRESSURE DECREASED [None]
  - CYSTITIS [None]
  - DRUG HYPERSENSITIVITY [None]
  - NAUSEA [None]
  - VOMITING [None]
  - WEIGHT DECREASED [None]
